FAERS Safety Report 7273951-0 (Version None)
Quarter: 2011Q1

REPORT INFORMATION
  Report Type: 
  Country: None (occurrence: None)
  Receive Date: 20110203
  Receipt Date: 20110202
  Transmission Date: 20110831
  Serious: Yes (Other)
  Sender: FDA-Public Use
  Company Number: DE-MERCK-1012DEU00016

PATIENT
  Age: 9 Year
  Sex: Male
  Weight: 39 kg

DRUGS (3)
  1. FORMOTEROL FUMARATE [Concomitant]
     Indication: ASTHMA
     Route: 055
     Dates: start: 20100916
  2. BUDESONIDE [Concomitant]
     Indication: ASTHMA
     Route: 055
     Dates: start: 20100429
  3. SINGULAIR [Suspect]
     Indication: ASTHMA
     Route: 048
     Dates: start: 20100824, end: 20100915

REACTIONS (6)
  - AGGRESSION [None]
  - MOOD SWINGS [None]
  - NIGHTMARE [None]
  - IRRITABILITY [None]
  - PERSONALITY DISORDER [None]
  - HALLUCINATION, VISUAL [None]
